FAERS Safety Report 6239055-0 (Version None)
Quarter: 2009Q2

REPORT INFORMATION
  Report Type: 
  Country: None (occurrence: None)
  Receive Date: 20090622
  Receipt Date: 20090616
  Transmission Date: 20091009
  Serious: Yes (Death, Other)
  Sender: FDA-Public Use
  Company Number: PHHY2009MX23937

PATIENT
  Sex: Female

DRUGS (1)
  1. ACLASTA [Suspect]
     Indication: OSTEOPOROSIS
     Dosage: 5 MG/100 ML

REACTIONS (2)
  - PNEUMONIA [None]
  - RENAL SURGERY [None]
